FAERS Safety Report 7229952-1 (Version None)
Quarter: 2011Q1

REPORT INFORMATION
  Report Type: 
  Country: None (occurrence: None)
  Receive Date: 20110117
  Receipt Date: 20110110
  Transmission Date: 20110831
  Serious: Yes (Hospitalization, Other)
  Sender: FDA-Public Use
  Company Number: IT-ELI_LILLY_AND_COMPANY-IT201101002424

PATIENT
  Sex: Male

DRUGS (6)
  1. METFORMIN HYDROCHLORIDE [Concomitant]
     Dosage: 1000 MG, UNKNOWN
     Route: 048
     Dates: start: 20081029, end: 20090709
  2. NOVONORM [Concomitant]
     Dosage: 0.5 MG, UNKNOWN
     Route: 048
     Dates: start: 20081029, end: 20090709
  3. RAMIPRIL [Concomitant]
     Dosage: 10 MG, UNKNOWN
     Route: 048
     Dates: start: 20060601, end: 20090709
  4. CARDURA [Concomitant]
     Dosage: 4 MG, UNKNOWN
     Route: 048
     Dates: start: 20060601, end: 20090709
  5. LASIX [Concomitant]
     Dosage: 25 MG, UNKNOWN
     Route: 048
     Dates: start: 20050101, end: 20090709
  6. BYETTA [Suspect]
     Indication: TYPE 2 DIABETES MELLITUS
     Dosage: 20 UG, DAILY (1/D)
     Route: 058
     Dates: start: 20081029, end: 20090720

REACTIONS (1)
  - ISCHAEMIC CARDIOMYOPATHY [None]
